FAERS Safety Report 4881757-2 (Version None)
Quarter: 2006Q1

REPORT INFORMATION
  Report Type: 
  Country: None (occurrence: None)
  Receive Date: 20060116
  Receipt Date: 20060104
  Transmission Date: 20060701
  Serious: Yes (Death)
  Sender: FDA-Public Use
  Company Number: IL-NOVOPROD-249816

PATIENT

DRUGS (1)
  1. NOVOSEVEN [Suspect]
     Indication: POST PROCEDURAL HAEMORRHAGE
     Dosage: 9.6 MG, UNK
     Dates: start: 20060101

REACTIONS (1)
  - POST PROCEDURAL HAEMORRHAGE [None]
